FAERS Safety Report 10384326 (Version 1)
Quarter: 2014Q3

REPORT INFORMATION
  Report Type: Other
  Country: GB (occurrence: GB)
  Receive Date: 20140814
  Receipt Date: 20140814
  Transmission Date: 20150326
  Serious: Yes (Life-Threatening)
  Sender: FDA-Public Use
  Company Number: GB-MYLAN-2014M1000412

PATIENT

DRUGS (1)
  1. FENTANYL. [Suspect]
     Active Substance: FENTANYL
     Dosage: PATCH 100MICROGRAMS PER HOUR, 24 HRS BEFORE DUE TO BE CHANGED
     Route: 048

REACTIONS (5)
  - Decerebrate posture [Recovered/Resolved]
  - Apnoeic attack [Recovered/Resolved]
  - Cyanosis [Recovered/Resolved]
  - Accidental exposure to product by child [Unknown]
  - Irritability [Unknown]

NARRATIVE: CASE EVENT DATE: 20140621
